FAERS Safety Report 25449015 (Version 1)
Quarter: 2025Q2

REPORT INFORMATION
  Report Type: Other
  Country: JP (occurrence: JP)
  Receive Date: 20250618
  Receipt Date: 20250618
  Transmission Date: 20250716
  Serious: Yes (Other)
  Sender: DEXCEL LTD.
  Company Number: JP-DEXPHARM-2025-3491

PATIENT
  Age: 49 Year
  Sex: Female

DRUGS (5)
  1. eirenicon [Concomitant]
  2. CYCLOPHOSPHAMIDE [Concomitant]
     Active Substance: CYCLOPHOSPHAMIDE
  3. PACLITAXEL [Concomitant]
     Active Substance: PACLITAXEL
  4. PEGYLATED GRANULOCYTE COLONY-STIMULATING FACTOR [Suspect]
     Active Substance: PEGYLATED GRANULOCYTE COLONY-STIMULATING FACTOR
  5. DEXAMETHASONE [Suspect]
     Active Substance: DEXAMETHASONE

REACTIONS (2)
  - Acute kidney injury [Unknown]
  - Drug interaction [Unknown]
